FAERS Safety Report 6187357-9 (Version None)
Quarter: 2009Q2

REPORT INFORMATION
  Report Type: 
  Country: None (occurrence: None)
  Receive Date: 20090512
  Receipt Date: 20090504
  Transmission Date: 20091009
  Serious: Yes (Other)
  Sender: FDA-Public Use
  Company Number: A0776608A

PATIENT
  Age: 49 Year
  Sex: Female

DRUGS (4)
  1. TYKERB [Suspect]
     Indication: BREAST CANCER
     Dosage: 1000 PER DAY
     Route: 048
     Dates: start: 20090320
  2. HERCEPTIN [Concomitant]
     Route: 042
  3. AREDIA [Concomitant]
     Route: 042
  4. NEURONTIN [Concomitant]

REACTIONS (6)
  - DEHYDRATION [None]
  - DIARRHOEA [None]
  - FATIGUE [None]
  - FLATULENCE [None]
  - NAUSEA [None]
  - RASH [None]
